FAERS Safety Report 14446275 (Version 1)
Quarter: 2018Q1

REPORT INFORMATION
  Report Type: Spontaneous
  Country: US (occurrence: US)
  Receive Date: 20180126
  Receipt Date: 20180126
  Transmission Date: 20180509
  Serious: No
  Sender: FDA-Public Use
  Company Number: US-PFIZER INC-2018032528

PATIENT
  Sex: Male

DRUGS (1)
  1. FLECTOR [Suspect]
     Active Substance: DICLOFENAC EPOLAMINE
     Indication: PAIN
     Dosage: UNK, 2X/DAY (APPLY ONE PATCH, CUT IN HALF TO THE EFFECTED AREA TWICE A DAY)
     Route: 061

REACTIONS (2)
  - Drug prescribing error [Unknown]
  - Drug effect incomplete [Unknown]
